FAERS Safety Report 6484128-0 (Version None)
Quarter: 2009Q4

REPORT INFORMATION
  Report Type: 
  Country: None (occurrence: None)
  Receive Date: 20091209
  Receipt Date: 20091202
  Transmission Date: 20100525
  Serious: Yes (Life-Threatening, Hospitalization)
  Sender: FDA-Public Use
  Company Number: US-GILEAD-2009-0025739

PATIENT
  Sex: Male
  Weight: 68.1 kg

DRUGS (11)
  1. LETAIRIS [Suspect]
     Indication: PULMONARY ARTERIAL HYPERTENSION
     Route: 048
     Dates: start: 20090811
  2. SPIRONOLACTONE [Concomitant]
  3. KLONOPIN [Concomitant]
  4. DILANTIN [Concomitant]
  5. PRILOSEC [Concomitant]
  6. SENOKOT [Concomitant]
  7. TORSEMIDE [Concomitant]
  8. REVATIO [Concomitant]
  9. OXYCODONE [Concomitant]
  10. TUMS 500 [Concomitant]
  11. ZOLPIDEM [Concomitant]

REACTIONS (2)
  - ACUTE RIGHT VENTRICULAR FAILURE [None]
  - CONVULSION [None]
